FAERS Safety Report 7154281-4 (Version None)
Quarter: 2010Q4

REPORT INFORMATION
  Report Type: 
  Country: None (occurrence: None)
  Receive Date: 20101213
  Receipt Date: 20101209
  Transmission Date: 20110411
  Serious: Yes (Hospitalization)
  Sender: FDA-Public Use
  Company Number: AU-ROCHE-747059

PATIENT
  Sex: Female

DRUGS (2)
  1. ACTEMRA [Suspect]
     Indication: RHEUMATOID ARTHRITIS
     Dosage: FORM: INFUSION
     Route: 065
     Dates: start: 20101001, end: 20101001
  2. ACTEMRA [Suspect]
     Route: 065
     Dates: start: 20101126, end: 20101126

REACTIONS (2)
  - DYSPNOEA [None]
  - PULMONARY HAEMORRHAGE [None]
